FAERS Safety Report 9888018 (Version 1)
Quarter: 2014Q1

REPORT INFORMATION
  Report Type: Spontaneous
  Country: US (occurrence: None)
  Receive Date: 20140207
  Receipt Date: 20140207
  Transmission Date: 20141002
  Serious: Yes (Death)
  Sender: FDA-Public Use
  Company Number: SYM-2014-15792

PATIENT
  Age: 27 Year
  Sex: Male

DRUGS (1)
  1. SALICYLATE [Suspect]
     Indication: PRODUCT USED FOR UNKNOWN INDICATION
     Route: 048

REACTIONS (14)
  - Poisoning [None]
  - Dyspnoea [None]
  - Blood glucose increased [None]
  - Exposure via ingestion [None]
  - Sinus tachycardia [None]
  - Psychotic disorder [None]
  - Aggression [None]
  - Bite [None]
  - Staring [None]
  - Hypoxia [None]
  - Bradycardia [None]
  - Pyrexia [None]
  - Cardiac arrest [None]
  - Completed suicide [None]
